FAERS Safety Report 10099398 (Version 1)
Quarter: 2014Q2

REPORT INFORMATION
  Report Type: Report from Study
  Country: US (occurrence: US)
  Receive Date: 20140423
  Receipt Date: 20140423
  Transmission Date: 20141212
  Serious: Yes (Hospitalization, Other)
  Sender: FDA-Public Use
  Company Number: US-ROCHE-1388578

PATIENT
  Age: 75 Year
  Sex: Male
  Weight: 64.5 kg

DRUGS (3)
  1. VISMODEGIB [Suspect]
     Indication: PANCREATIC CARCINOMA
     Route: 048
     Dates: start: 20140404
  2. SIROLIMUS [Suspect]
     Indication: PANCREATIC CARCINOMA
     Route: 048
     Dates: start: 20140404
  3. OXYCODONE [Concomitant]

REACTIONS (3)
  - Pyrexia [Unknown]
  - Chills [Unknown]
  - Thrombocytopenia [Unknown]
